FAERS Safety Report 7855389-8 (Version None)
Quarter: 2011Q4

REPORT INFORMATION
  Report Type: 
  Country: None (occurrence: None)
  Receive Date: 20111026
  Receipt Date: 20111011
  Transmission Date: 20120403
  Serious: Yes (Other)
  Sender: FDA-Public Use
  Company Number: HR-WATSON-2011-17051

PATIENT
  Age: 31 Year
  Sex: Female

DRUGS (11)
  1. GABAPENTIN [Suspect]
     Indication: PAIN
  2. FENTANYL-100 [Suspect]
     Indication: PAIN
  3. ESOMEPRAZOLE (UNKNOWN) [Suspect]
     Indication: PAIN
  4. OXYCODONE HCL [Suspect]
     Indication: PAIN
  5. DIAZEPAM [Suspect]
     Indication: PAIN
  6. SERTRALINE HYDROCHLORIDE [Suspect]
     Indication: PAIN
  7. TRAMADOL HCL [Suspect]
     Indication: PAIN
  8. BACLOFEN [Suspect]
     Indication: PAIN
  9. PREGABALIN [Suspect]
     Indication: PAIN
  10. CARBAMAZEPINE [Suspect]
     Indication: PAIN
  11. BUPRENORPHINE HYDROCHLORIDE [Suspect]
     Indication: PAIN

REACTIONS (16)
  - CONFUSIONAL STATE [None]
  - PRURITUS [None]
  - SYNCOPE [None]
  - ASTHENIA [None]
  - FATIGUE [None]
  - OEDEMA [None]
  - HEADACHE [None]
  - DIPLOPIA [None]
  - SEDATION [None]
  - RASH [None]
  - ATAXIA [None]
  - NAUSEA [None]
  - VOMITING [None]
  - DRUG INEFFECTIVE [None]
  - DIZZINESS [None]
  - CONSTIPATION [None]
